FAERS Safety Report 10610013 (Version 4)
Quarter: 2015Q2

REPORT INFORMATION
  Report Type: Spontaneous
  Country: US (occurrence: US)
  Receive Date: 20141126
  Receipt Date: 20150603
  Transmission Date: 20150821
  Serious: Yes (Death, Hospitalization, Disabling, Other)
  Sender: FDA-Public Use
  Company Number: US-009507513-1411USA011811

PATIENT
  Sex: Male
  Weight: 103.4 kg

DRUGS (1)
  1. JANUVIA [Suspect]
     Active Substance: SITAGLIPTIN PHOSPHATE
     Indication: TYPE 2 DIABETES MELLITUS
     Dosage: 100 MG, QD
     Route: 048
     Dates: start: 20080811, end: 20130610

REACTIONS (27)
  - Metastases to bone [Unknown]
  - Metastases to central nervous system [Unknown]
  - Fall [Unknown]
  - Coagulopathy [Unknown]
  - Spinal osteoarthritis [Unknown]
  - Arthroscopy [Unknown]
  - Gastric polyps [Unknown]
  - Colon adenoma [Unknown]
  - Venous thrombosis [Unknown]
  - Neutropenia [Unknown]
  - Depression [Unknown]
  - Bronchospasm [Unknown]
  - Sleep apnoea syndrome [Unknown]
  - Deep vein thrombosis [Unknown]
  - Anxiety [Unknown]
  - Sinusitis [Unknown]
  - Hepatic steatosis [Unknown]
  - Drug ineffective [Unknown]
  - Metastases to lung [Unknown]
  - Pulmonary embolism [Unknown]
  - Neuropathy peripheral [Unknown]
  - Pleural effusion [Unknown]
  - Fatigue [Unknown]
  - Pancreatic carcinoma metastatic [Fatal]
  - Cholelithiasis [Unknown]
  - Skeletal injury [Unknown]
  - Hyponatraemia [Unknown]

NARRATIVE: CASE EVENT DATE: 2011
